FAERS Safety Report 19735972 (Version 1)
Quarter: 2021Q3

REPORT INFORMATION
  Report Type: Spontaneous
  Country: DE (occurrence: DE)
  Receive Date: 20210823
  Receipt Date: 20210823
  Transmission Date: 20211014
  Serious: Yes (Other)
  Sender: FDA-Public Use
  Company Number: DE-MYLANLABS-2021M1053495

PATIENT
  Sex: Male

DRUGS (1)
  1. PANTOPRAZOLE [Suspect]
     Active Substance: PANTOPRAZOLE
     Indication: GASTROOESOPHAGEAL REFLUX DISEASE
     Dosage: 20 MILLIGRAM
     Route: 065

REACTIONS (7)
  - Cardiac discomfort [Unknown]
  - Flatulence [Unknown]
  - Vitamin B12 deficiency [Unknown]
  - Dyspnoea [Unknown]
  - Insomnia [Unknown]
  - Arrhythmia [Unknown]
  - Abdominal distension [Unknown]
